FAERS Safety Report 7031303-2 (Version None)
Quarter: 2010Q4

REPORT INFORMATION
  Report Type: 
  Country: None (occurrence: None)
  Receive Date: 20101006
  Receipt Date: 20100929
  Transmission Date: 20110411
  Serious: Yes (Hospitalization)
  Sender: FDA-Public Use
  Company Number: D0068774A

PATIENT
  Age: 16 Year
  Sex: Male
  Weight: 66 kg

DRUGS (1)
  1. VIANI FORTE [Suspect]
     Dosage: 550UG SEE DOSAGE TEXT
     Route: 055
     Dates: start: 20100904, end: 20100904

REACTIONS (3)
  - DRUG ABUSE [None]
  - INTENTIONAL OVERDOSE [None]
  - NO ADVERSE EVENT [None]
